FAERS Safety Report 4844705-7 (Version None)
Quarter: 2005Q4

REPORT INFORMATION
  Report Type: 
  Country: None (occurrence: None)
  Receive Date: 20051129
  Receipt Date: 20051110
  Transmission Date: 20060501
  Serious: Yes (Other)
  Sender: FDA-Public Use
  Company Number: WAES 0511ESP00014

PATIENT
  Age: 5 Year
  Sex: Female

DRUGS (2)
  1. CANCIDAS [Suspect]
     Indication: FEBRILE NEUTROPENIA
     Dosage: IV
     Route: 042
     Dates: start: 20051110, end: 20051110
  2. INJ BLINDED THERAPY [Suspect]
     Indication: FEBRILE NEUTROPENIA
     Dosage: IV
     Route: 042
     Dates: start: 20051110, end: 20051110

REACTIONS (3)
  - CIRCUMORAL OEDEMA [None]
  - FACE OEDEMA [None]
  - SPEECH DISORDER [None]
